FAERS Safety Report 19315797 (Version 2)
Quarter: 2021Q2

REPORT INFORMATION
  Report Type: Spontaneous
  Country: US (occurrence: US)
  Receive Date: 20210527
  Receipt Date: 20210531
  Transmission Date: 20210717
  Serious: Yes (Other)
  Sender: FDA-Public Use
  Company Number: US-GLAXOSMITHKLINE-USCH2021031692

PATIENT
  Age: 65 Year
  Sex: Male

DRUGS (1)
  1. AQUAFRESH EXTREME CLEAN WHITENING ACTION [Suspect]
     Active Substance: SODIUM FLUORIDE
     Indication: PRODUCT USED FOR UNKNOWN INDICATION
     Dosage: UNK

REACTIONS (2)
  - Burn oral cavity [Unknown]
  - Burning sensation [Unknown]
